FAERS Safety Report 15395469 (Version 1)
Quarter: 2018Q3

REPORT INFORMATION
  Report Type: Spontaneous
  Country: FR (occurrence: FR)
  Receive Date: 20180918
  Receipt Date: 20180918
  Transmission Date: 20181010
  Serious: Yes (Hospitalization)
  Sender: FDA-Public Use
  Company Number: FR-JNJFOC-20180907844

PATIENT
  Age: 30 Year
  Sex: Male
  Weight: 86.8 kg

DRUGS (10)
  1. ZYVOXID [Concomitant]
     Active Substance: LINEZOLID
     Route: 065
  2. CYCLOSERINE. [Concomitant]
     Active Substance: CYCLOSERINE
     Route: 065
  3. BECILAN [Concomitant]
     Active Substance: PYRIDOXINE
     Route: 065
  4. PARA?AMINOSALICYLIC ACID [Concomitant]
     Active Substance: AMINOSALICYLIC ACID
     Route: 065
  5. BEDAQUILINE [Suspect]
     Active Substance: BEDAQUILINE
     Indication: TUBERCULOSIS
     Route: 048
     Dates: start: 20151027, end: 20160224
  6. ATARAX [Concomitant]
     Active Substance: HYDROXYZINE HYDROCHLORIDE
     Route: 065
  7. SPASFON [Concomitant]
     Route: 065
  8. INEXIUM [Concomitant]
     Active Substance: ESOMEPRAZOLE
     Route: 065
  9. PERFALGAN [Concomitant]
     Active Substance: ACETAMINOPHEN
     Route: 065
  10. AMIKACIN. [Concomitant]
     Active Substance: AMIKACIN
     Route: 065

REACTIONS (2)
  - Pneumatosis intestinalis [Recovering/Resolving]
  - Abdominal pain [Recovering/Resolving]

NARRATIVE: CASE EVENT DATE: 201602
